FAERS Safety Report 4551835-6 (Version None)
Quarter: 2005Q1

REPORT INFORMATION
  Report Type: 
  Country: None (occurrence: None)
  Receive Date: 20050111
  Receipt Date: 20041228
  Transmission Date: 20050727
  Serious: Yes (Hospitalization)
  Sender: FDA-Public Use
  Company Number: RENA-11227

PATIENT
  Age: 69 Year
  Sex: Female
  Weight: 58.1 kg

DRUGS (10)
  1. RENAGEL [Suspect]
     Indication: HYPERPHOSPHATAEMIA
     Dosage: 1 G TID PO
     Route: 048
     Dates: start: 20040527, end: 20040627
  2. RENAGEL [Suspect]
     Indication: HYPERPHOSPHATAEMIA
     Dosage: 1 G TID PO
     Route: 048
     Dates: start: 20030912, end: 20040520
  3. CALTAN [Concomitant]
  4. GASTER [Concomitant]
  5. ALOSENN [Concomitant]
  6. HALCION [Concomitant]
  7. TINELAC [Concomitant]
  8. SOLON [Concomitant]
  9. ANPLAG [Concomitant]
  10. KAYEXALATE [Concomitant]

REACTIONS (1)
  - DIVERTICULUM INTESTINAL HAEMORRHAGIC [None]
